FAERS Safety Report 23631195 (Version 2)
Quarter: 2024Q1

REPORT INFORMATION
  Report Type: Report from Study
  Country: DE (occurrence: DE)
  Receive Date: 20240314
  Receipt Date: 20240322
  Transmission Date: 20240409
  Serious: Yes (Hospitalization)
  Sender: FDA-Public Use
  Company Number: DE-SUN PHARMACEUTICAL INDUSTRIES LTD-2024RR-435070

PATIENT
  Age: 19 Year
  Sex: Female
  Weight: 39.7 kg

DRUGS (4)
  1. SONIDEGIB [Suspect]
     Active Substance: SONIDEGIB
     Indication: Medulloblastoma
     Dosage: UNK
     Route: 065
  2. CISPLATIN [Suspect]
     Active Substance: CISPLATIN
     Indication: Medulloblastoma
     Dosage: 54.4 MILLIGRAM EVERY 6 WEEKS
     Route: 042
     Dates: start: 20230721, end: 20240223
  3. VINCRISTINE [Suspect]
     Active Substance: VINCRISTINE
     Indication: Medulloblastoma
     Dosage: 2 MILLIGRAM TWICE EVERY 6 WEEKS, EVERY 3 WEEKS
     Route: 042
     Dates: start: 20230427, end: 20240223
  4. LOMUSTINE [Suspect]
     Active Substance: LOMUSTINE
     Indication: Medulloblastoma
     Dosage: UNK, 80 MG, EVERY 6 WEEKS
     Route: 048
     Dates: start: 20230721, end: 20240223

REACTIONS (1)
  - Decreased appetite [Recovered/Resolved with Sequelae]

NARRATIVE: CASE EVENT DATE: 20240228
